FAERS Safety Report 5684510-5 (Version None)
Quarter: 2008Q1

REPORT INFORMATION
  Report Type: 
  Country: None (occurrence: None)
  Receive Date: 20080328
  Receipt Date: 20080318
  Transmission Date: 20080703
  Serious: Yes (Other)
  Sender: FDA-Public Use
  Company Number: SE-ROCHE-554490

PATIENT
  Sex: Male

DRUGS (2)
  1. PEGASYS [Suspect]
     Indication: DRUG USE FOR UNKNOWN INDICATION
     Route: 065
  2. ANAGRELIDE HCL [Interacting]
     Dosage: DRUG: XAGRID, RECEIVED 1 MG IN THE MORNING AND 2 MG IN THE EVENING.
     Route: 048

REACTIONS (3)
  - DRUG INTERACTION [None]
  - MYELOFIBROSIS [None]
  - PLATELET COUNT DECREASED [None]
